FAERS Safety Report 5064449-9 (Version None)
Quarter: 2006Q3

REPORT INFORMATION
  Report Type: 
  Country: None (occurrence: None)
  Receive Date: 20060728
  Receipt Date: 20060327
  Transmission Date: 20061208
  Serious: Yes (Other)
  Sender: FDA-Public Use
  Company Number: DE-BRISTOL-MYERS SQUIBB COMPANY-13329123

PATIENT
  Age: 26 Year
  Sex: Male
  Weight: 70 kg

DRUGS (4)
  1. ABILIFY [Suspect]
     Indication: SCHIZOPHRENIA
     Dosage: 7.5 MG 19-OCT TO 23-OCT-2005; 15 MG 24-OCT-2005; INTERRUPTED 03-MAR-2005; 5 MG 27-MAR-2005
     Route: 048
     Dates: start: 20051019
  2. ABILIFY [Suspect]
     Indication: SCHIZOAFFECTIVE DISORDER
     Dosage: 7.5 MG 19-OCT TO 23-OCT-2005; 15 MG 24-OCT-2005; INTERRUPTED 03-MAR-2005; 5 MG 27-MAR-2005
     Route: 048
     Dates: start: 20051019
  3. ZYPREXA [Suspect]
     Indication: SCHIZOPHRENIA
     Dosage: INTERMITTENT INTAKE OF 10 MG DAILY FOR A SHORT WHILE
     Route: 048
     Dates: start: 20050715
  4. ZYPREXA [Suspect]
     Indication: SCHIZOAFFECTIVE DISORDER
     Dosage: INTERMITTENT INTAKE OF 10 MG DAILY FOR A SHORT WHILE
     Route: 048
     Dates: start: 20050715

REACTIONS (1)
  - SYNCOPE [None]
